FAERS Safety Report 25250211 (Version 1)
Quarter: 2025Q2

REPORT INFORMATION
  Report Type: Other
  Country: PR (occurrence: PR)
  Receive Date: 20250429
  Receipt Date: 20250429
  Transmission Date: 20250717
  Serious: Yes (Death, Other)
  Sender: B BRAUN
  Company Number: PR-B.Braun Medical Inc.-2175817

PATIENT
  Age: 55 Year
  Sex: Female

DRUGS (1)
  1. CEFAZOLIN SODIUM [Suspect]
     Active Substance: CEFAZOLIN SODIUM
     Indication: Prophylaxis

REACTIONS (2)
  - Colitis [Fatal]
  - Megacolon [Fatal]
